FAERS Safety Report 23095900 (Version 1)
Quarter: 2023Q4

REPORT INFORMATION
  Report Type: Spontaneous
  Country: US (occurrence: None)
  Receive Date: 20231020
  Receipt Date: 20231020
  Transmission Date: 20240110
  Serious: Yes (Hospitalization)
  Sender: FDA-Public Use
  Company Number: None

PATIENT
  Age: 63 Year
  Sex: Female
  Weight: 71.28 kg

DRUGS (8)
  1. STEGLATRO [Suspect]
     Active Substance: ERTUGLIFLOZIN PIDOLATE
     Indication: Diabetes mellitus
     Dosage: FREQUENCY : DAILY;?
     Route: 048
     Dates: start: 20200402, end: 20231020
  2. Omeprazole 20 mg 1 cap by mouth daily [Concomitant]
  3. Metformin HCl 1000 mg 1 tablet by mouth twice per day [Concomitant]
  4. Letrozole 2.5 mg 1 tablet by mouth every day [Concomitant]
  5. Lisinopril 10 mg tablet 1 tablet by mouth daily [Concomitant]
  6. Alprazolam 0.5 mg tablet 1 tablet orally twice per day prn anxiety [Concomitant]
  7. Calcium-Vitamin D 600-400 mg unit tablet 1 tablet with a meal orally [Concomitant]
  8. Basaglar KwikPen 100 unit/ML solution Pen-injector 60 units SUBQ daily [Concomitant]

REACTIONS (4)
  - Pyrexia [None]
  - Chills [None]
  - Blood culture positive [None]
  - Candida infection [None]

NARRATIVE: CASE EVENT DATE: 20230927
